FAERS Safety Report 26206775 (Version 1)
Quarter: 2025Q4

REPORT INFORMATION
  Report Type: Spontaneous
  Country: US (occurrence: US)
  Receive Date: 20251229
  Receipt Date: 20251229
  Transmission Date: 20260117
  Serious: Yes (Other)
  Sender: RANBAXY
  Company Number: US-SUN PHARMACEUTICAL INDUSTRIES INC-2025R1-543732

PATIENT
  Age: 84 Year
  Sex: Male

DRUGS (4)
  1. METRONIDAZOLE [Suspect]
     Active Substance: METRONIDAZOLE
     Indication: Infection
     Dosage: UNK
     Route: 065
  2. VANCOMYCIN [Suspect]
     Active Substance: VANCOMYCIN
     Indication: Infection
     Dosage: UNK
     Route: 065
  3. VORICONAZOLE [Suspect]
     Active Substance: VORICONAZOLE
     Indication: Aspergillus infection
     Dosage: UNK
     Route: 065
  4. VORICONAZOLE [Suspect]
     Active Substance: VORICONAZOLE
     Dosage: UNK
     Route: 065

REACTIONS (1)
  - Poor prognosis [Unknown]
